FAERS Safety Report 9719034 (Version 2)
Quarter: 2013Q4

REPORT INFORMATION
  Report Type: Spontaneous
  Country: BR (occurrence: BR)
  Receive Date: 20131127
  Receipt Date: 20131223
  Transmission Date: 20140711
  Serious: Yes (Other)
  Sender: FDA-Public Use
  Company Number: BR-ABBVIE-13P-020-1173897-00

PATIENT
  Sex: Female
  Weight: 85 kg

DRUGS (1)
  1. SYNTHROID [Suspect]
     Indication: HYPOTHYROIDISM
     Route: 048
     Dates: start: 1998

REACTIONS (3)
  - Thrombosis [Recovered/Resolved]
  - Irritability [Recovered/Resolved]
  - Tremor [Recovered/Resolved]
